FAERS Safety Report 8982394 (Version 1)
Quarter: 2012Q4

REPORT INFORMATION
  Report Type: 
  Country: FR (occurrence: FR)
  Receive Date: 20121222
  Receipt Date: 20121222
  Transmission Date: 20130627
  Serious: Yes (Hospitalization)
  Sender: FDA-Public Use
  Company Number: FR-B.I. PHARMACEUTICALS,INC./RIDGEFIELD-2012-FF-02002FF

PATIENT
  Age: 89 Year
  Sex: Male

DRUGS (4)
  1. PRADAXA [Suspect]
     Indication: ATRIAL FIBRILLATION
     Route: 048
     Dates: end: 20121018
  2. HEMIGOXINE NATIVELLE [Concomitant]
     Indication: ATRIAL FIBRILLATION
     Route: 048
  3. LYRICA [Concomitant]
     Route: 048
  4. URION [Concomitant]

REACTIONS (1)
  - Acute myocardial infarction [Recovered/Resolved with Sequelae]
